FAERS Safety Report 8057196-2 (Version None)
Quarter: 2012Q1

REPORT INFORMATION
  Report Type: 
  Country: None (occurrence: None)
  Receive Date: 20120119
  Receipt Date: 20120112
  Transmission Date: 20120608
  Serious: Yes (Other)
  Sender: FDA-Public Use
  Company Number: PHHY2011BR109662

PATIENT
  Sex: Male

DRUGS (8)
  1. ISOSORBIDE MONONITRATE [Concomitant]
     Indication: INFARCTION
     Dosage: 2 DF, PER DAY
     Dates: start: 20090101
  2. DIAZEPAM [Concomitant]
  3. APRESOLINE [Suspect]
     Indication: HYPERTENSION
     Dosage: 3 DF, QD
  4. FUROSEMIDE [Concomitant]
     Dosage: 1 DF, PER DAY
  5. EXFORGE [Suspect]
     Indication: HYPERTENSION
     Dosage: 1 DF, QD
  6. ATENOLOL [Concomitant]
     Indication: HYPERTENSION
     Dosage: 2 DF, PER DAY
  7. CLONAZEPAM [Concomitant]
  8. SIMVASTATIN [Concomitant]
     Indication: HYPERCHOLESTEROLAEMIA
     Dosage: 1 DF, PER DAY

REACTIONS (2)
  - EMOTIONAL DISORDER [None]
  - HYPERTENSION [None]
